FAERS Safety Report 10387510 (Version 1)
Quarter: 2014Q3

REPORT INFORMATION
  Report Type: Spontaneous
  Country: US (occurrence: US)
  Receive Date: 20140815
  Receipt Date: 20140815
  Transmission Date: 20150326
  Serious: No
  Sender: FDA-Public Use
  Company Number: US-TARO-2013P1020036

PATIENT
  Age: 62 Year
  Sex: Male

DRUGS (2)
  1. LAMISIL [Suspect]
     Active Substance: TERBINAFINE HYDROCHLORIDE
     Dosage: BID
     Route: 061
     Dates: start: 20131002
  2. PRVCD 24HR 15MG CAP 14CT [Concomitant]
     Dates: start: 2012, end: 20131003

REACTIONS (8)
  - Eye irritation [Unknown]
  - Headache [Recovered/Resolved]
  - Skin exfoliation [Recovering/Resolving]
  - Parosmia [Unknown]
  - Nervousness [Unknown]
  - Ear congestion [Unknown]
  - Erythema [Recovered/Resolved]
  - Pruritus [Recovering/Resolving]
